FAERS Safety Report 8218664-3 (Version None)
Quarter: 2012Q1

REPORT INFORMATION
  Report Type: 
  Country: None (occurrence: None)
  Receive Date: 20120306
  Receipt Date: 20111024
  Transmission Date: 20120608
  Serious: Yes (Other)
  Sender: FDA-Public Use
  Company Number: US-007009

PATIENT
  Sex: Female

DRUGS (1)
  1. ISOVUE-370 [Suspect]
     Indication: ABDOMEN SCAN
     Dosage: 100ML ONCE
     Dates: start: 20111021, end: 20111021

REACTIONS (1)
  - CONTRAST MEDIA REACTION [None]
